FAERS Safety Report 7248335-1 (Version None)
Quarter: 2011Q1

REPORT INFORMATION
  Report Type: 
  Country: None (occurrence: None)
  Receive Date: 20110127
  Receipt Date: 20110119
  Transmission Date: 20110831
  Serious: Yes (Other)
  Sender: FDA-Public Use
  Company Number: PHHY2011SE05068

PATIENT
  Sex: Male

DRUGS (2)
  1. PREDNISOLONE [Concomitant]
  2. CERTICAN [Suspect]
     Indication: SQUAMOUS CELL CARCINOMA
     Dosage: 1.5 MG, BID
     Dates: start: 20101020, end: 20110118

REACTIONS (4)
  - UPPER RESPIRATORY TRACT INFECTION [None]
  - PAROTITIS [None]
  - EMPHYSEMA [None]
  - ERYSIPELAS [None]
